FAERS Safety Report 17834222 (Version 1)
Quarter: 2020Q2

REPORT INFORMATION
  Report Type: Spontaneous
  Country: US (occurrence: US)
  Receive Date: 20200528
  Receipt Date: 20200528
  Transmission Date: 20200714
  Serious: Yes (Other)
  Sender: FDA-Public Use
  Company Number: None

PATIENT
  Age: 67 Year
  Sex: Female
  Weight: 65.25 kg

DRUGS (8)
  1. SYMBICORT [Concomitant]
     Active Substance: BUDESONIDE\FORMOTEROL FUMARATE DIHYDRATE
  2. SPIRIVA [Concomitant]
     Active Substance: TIOTROPIUM BROMIDE MONOHYDRATE
  3. ALBUTERNOL NEBULIZER [Concomitant]
  4. SUSTAIN EYE DROPS [Concomitant]
  5. MICONAZOLE 7 [Suspect]
     Active Substance: MICONAZOLE NITRATE
     Indication: TINEA PEDIS
     Dosage: ?          QUANTITY:45 CREAM-OZ;?
     Route: 061
  6. PROAIR HFA [Concomitant]
     Active Substance: ALBUTEROL SULFATE
  7. BAYER ASPIRIN [Concomitant]
     Active Substance: ASPIRIN
  8. ADVIL [Concomitant]
     Active Substance: IBUPROFEN

REACTIONS (3)
  - Burning sensation [None]
  - Product substitution issue [None]
  - Hyperkeratosis [None]

NARRATIVE: CASE EVENT DATE: 20200510
